FAERS Safety Report 5695722-9 (Version None)
Quarter: 2008Q2

REPORT INFORMATION
  Report Type: 
  Country: None (occurrence: None)
  Receive Date: 20080403
  Receipt Date: 20080317
  Transmission Date: 20081010
  Serious: Yes (Other)
  Sender: FDA-Public Use
  Company Number: 2008S1004577

PATIENT
  Age: 51 Year
  Sex: Female
  Weight: 77.1115 kg

DRUGS (2)
  1. AMNESTEEM [Suspect]
     Dosage: 10 MG;TWICE A DAY;ORAL
     Route: 048
     Dates: start: 20071206, end: 20080101
  2. LIPITOR [Concomitant]

REACTIONS (6)
  - ABORTION SPONTANEOUS [None]
  - DRUG EXPOSURE DURING PREGNANCY [None]
  - ENTEROBACTER INFECTION [None]
  - INFECTED CYST [None]
  - INFLUENZA [None]
  - PREGNANCY [None]
